FAERS Safety Report 9485464 (Version 1)
Quarter: 2013Q3

REPORT INFORMATION
  Report Type: Spontaneous
  Country: US (occurrence: US)
  Receive Date: 20130829
  Receipt Date: 20130829
  Transmission Date: 20140515
  Serious: Yes (Hospitalization)
  Sender: FDA-Public Use
  Company Number: US-BIOGENIDEC-2013BI078908

PATIENT
  Age: 57 Year
  Sex: Female
  Weight: 59 kg

DRUGS (7)
  1. TYSABRI [Suspect]
     Indication: MULTIPLE SCLEROSIS
     Route: 042
     Dates: start: 20120113, end: 201307
  2. ALPRAZOLAM [Concomitant]
     Route: 048
  3. AMLODIPINE [Concomitant]
     Route: 048
  4. BACLOFEN [Concomitant]
     Route: 048
  5. CALCIUM-CHOLECALCIFEROL [Concomitant]
     Route: 048
  6. FISH OIL [Concomitant]
     Route: 048
  7. SIMVASTATIN [Concomitant]
     Route: 048

REACTIONS (1)
  - Anaemia macrocytic [Unknown]
